FAERS Safety Report 23258938 (Version 1)
Quarter: 2023Q4

REPORT INFORMATION
  Report Type: Report from Study
  Country: US (occurrence: US)
  Receive Date: 20231204
  Receipt Date: 20231204
  Transmission Date: 20240109
  Serious: Yes (Hospitalization)
  Sender: FDA-Public Use
  Company Number: US-Eisai Medical Research-EC-2015-004975

PATIENT
  Age: 66 Year
  Sex: Male
  Weight: 163 kg

DRUGS (48)
  1. LENVIMA [Suspect]
     Active Substance: LENVATINIB
     Indication: Thyroid cancer
     Route: 048
     Dates: start: 20150212, end: 2015
  2. LENVIMA [Suspect]
     Active Substance: LENVATINIB
     Route: 048
     Dates: start: 20150310, end: 2015
  3. LENVIMA [Suspect]
     Active Substance: LENVATINIB
     Route: 048
     Dates: start: 201507, end: 201707
  4. LENVIMA [Suspect]
     Active Substance: LENVATINIB
     Dosage: MISSED 3 DOSES
     Route: 048
     Dates: start: 2017, end: 201809
  5. LENVIMA [Suspect]
     Active Substance: LENVATINIB
     Route: 048
     Dates: start: 201810, end: 202212
  6. LENVIMA [Suspect]
     Active Substance: LENVATINIB
     Route: 048
     Dates: start: 202212
  7. HYDROCHLOROTHIAZIDE [Suspect]
     Active Substance: HYDROCHLOROTHIAZIDE
     Indication: Hypertension
     Route: 048
     Dates: end: 201809
  8. CHLORINE [Suspect]
     Active Substance: CHLORINE
     Indication: Product used for unknown indication
     Dosage: DOSE AND FREQUENCY UNKNOWN
     Route: 050
  9. AMOXICILLIN [Suspect]
     Active Substance: AMOXICILLIN
     Indication: Product used for unknown indication
     Dosage: DOSE AND FREQUENCY UNKNOWN
     Route: 065
     Dates: start: 20160803
  10. FLONASE [Concomitant]
     Active Substance: FLUTICASONE PROPIONATE
  11. K PHOS NEUTRAL [Concomitant]
     Active Substance: POTASSIUM PHOSPHATE, MONOBASIC\SODIUM PHOSPHATE, DIBASIC, ANHYDROUS\SODIUM PHOSPHATE, MONOBASIC, MON
  12. KLOR-CON [Concomitant]
     Active Substance: POTASSIUM CHLORIDE
  13. NEXAVAR [Concomitant]
     Active Substance: SORAFENIB
  14. UREA [Concomitant]
     Active Substance: UREA
  15. KETOCONAZOLE [Concomitant]
     Active Substance: KETOCONAZOLE
  16. CLINDAMYCIN PHOSPHATE [Concomitant]
     Active Substance: CLINDAMYCIN PHOSPHATE
  17. AMOXAPINE [Concomitant]
     Active Substance: AMOXAPINE
  18. AMLODIPINE [Concomitant]
     Active Substance: AMLODIPINE BESYLATE
  19. NYAMYC [Concomitant]
     Active Substance: NYSTATIN
  20. MECLIZINE [Concomitant]
     Active Substance: MECLIZINE HYDROCHLORIDE
  21. MECLOFENAMATE SODIUM [Concomitant]
     Active Substance: MECLOFENAMATE SODIUM
  22. NORVASC [Concomitant]
     Active Substance: AMLODIPINE BESYLATE
  23. HYDROCORTISONE [Concomitant]
     Active Substance: HYDROCORTISONE
  24. PRILOSEC [Concomitant]
     Active Substance: OMEPRAZOLE MAGNESIUM
  25. IOPHEN-C [Concomitant]
  26. AMMONIUM CHLORIDE\DEXTROMETHORPHAN\SODIUM CITRATE [Concomitant]
     Active Substance: AMMONIUM CHLORIDE\DEXTROMETHORPHAN\SODIUM CITRATE
  27. MUPIROCIN [Concomitant]
     Active Substance: MUPIROCIN
  28. MINOCYCLINE HYDROCHLORIDE [Concomitant]
     Active Substance: MINOCYCLINE HYDROCHLORIDE
  29. GUAIFENESIN AND CODEINE PHOSPHATE [Concomitant]
     Active Substance: CODEINE PHOSPHATE\GUAIFENESIN
  30. ACETAMINOPHEN\CODEINE PHOSPHATE [Concomitant]
     Active Substance: ACETAMINOPHEN\CODEINE PHOSPHATE
  31. INDOMETHACIN [Concomitant]
     Active Substance: INDOMETHACIN
  32. LISINOPRIL [Concomitant]
     Active Substance: LISINOPRIL
  33. TOPROL XL [Concomitant]
     Active Substance: METOPROLOL SUCCINATE
  34. ATENOLOL [Concomitant]
     Active Substance: ATENOLOL
  35. DICLOFENAC [Concomitant]
     Active Substance: DICLOFENAC
  36. METHYLPREDNISOLONE [Concomitant]
     Active Substance: METHYLPREDNISOLONE
  37. COLCHICINE [Concomitant]
     Active Substance: COLCHICINE
  38. SYNTHROID [Concomitant]
     Active Substance: LEVOTHYROXINE SODIUM
  39. COLCRYS [Concomitant]
     Active Substance: COLCHICINE
  40. OMEPRAZOLE [Concomitant]
     Active Substance: OMEPRAZOLE
  41. BETAMETHASONE DIPROPIO [Concomitant]
  42. MORPHINE [Concomitant]
     Active Substance: MORPHINE
  43. DILAUDID [Concomitant]
     Active Substance: HYDROMORPHONE HYDROCHLORIDE
  44. SHINGRIX [Concomitant]
     Active Substance: RECOMBINANT VARICELLA ZOSTER VIRUS (VZV) GLYCOPROTEIN E
  45. HIBICLENS [Concomitant]
     Active Substance: CHLORHEXIDINE GLUCONATE
  46. NYSTOP [Concomitant]
     Active Substance: NYSTATIN
  47. PREDNISONE [Concomitant]
     Active Substance: PREDNISONE
  48. ACETAMINOPHEN\OXYCODONE HYDROCHLORIDE [Concomitant]
     Active Substance: ACETAMINOPHEN\OXYCODONE HYDROCHLORIDE

REACTIONS (76)
  - Arthralgia [Not Recovered/Not Resolved]
  - Chondrocalcinosis [Unknown]
  - Synovial fluid white blood cells positive [Unknown]
  - Dry mouth [Unknown]
  - Diarrhoea [Recovered/Resolved]
  - Fatigue [Unknown]
  - Blood pressure fluctuation [Unknown]
  - Palmar-plantar erythrodysaesthesia syndrome [Not Recovered/Not Resolved]
  - Hypertension [Unknown]
  - Myalgia [Unknown]
  - Muscle atrophy [Not Recovered/Not Resolved]
  - Brain fog [Recovered/Resolved]
  - Memory impairment [Unknown]
  - Abdominal pain [Not Recovered/Not Resolved]
  - Muscle fatigue [Recovering/Resolving]
  - Malaise [Not Recovered/Not Resolved]
  - Productive cough [Not Recovered/Not Resolved]
  - Oropharyngeal pain [Unknown]
  - Dental caries [Not Recovered/Not Resolved]
  - Sinus congestion [Unknown]
  - Nasal discomfort [Not Recovered/Not Resolved]
  - Gait inability [Unknown]
  - Cough [Not Recovered/Not Resolved]
  - Abdominal pain upper [Unknown]
  - Upper-airway cough syndrome [Not Recovered/Not Resolved]
  - Dizziness [Not Recovered/Not Resolved]
  - Vertigo [Unknown]
  - Muscle spasms [Not Recovered/Not Resolved]
  - Blood potassium decreased [Unknown]
  - Gingival bleeding [Unknown]
  - Epistaxis [Not Recovered/Not Resolved]
  - Tooth abscess [Unknown]
  - Electrolyte depletion [Unknown]
  - Nipple pain [Unknown]
  - Pain in extremity [Not Recovered/Not Resolved]
  - Malignant neoplasm progression [Unknown]
  - Joint swelling [Unknown]
  - Paraesthesia [Not Recovered/Not Resolved]
  - Breast mass [Unknown]
  - Hordeolum [Unknown]
  - Toothache [Not Recovered/Not Resolved]
  - Neck injury [Unknown]
  - Somnolence [Not Recovered/Not Resolved]
  - Lethargy [Not Recovered/Not Resolved]
  - Oesophageal dilatation [Unknown]
  - Defaecation urgency [Unknown]
  - Blood magnesium decreased [Unknown]
  - Feeling cold [Unknown]
  - Epicondylitis [Unknown]
  - Dermatitis allergic [Unknown]
  - Blood iron increased [Unknown]
  - Heart rate decreased [Not Recovered/Not Resolved]
  - Foreign body in eye [Unknown]
  - Taste disorder [Unknown]
  - Pain [Unknown]
  - Myelosuppression [Unknown]
  - Hormone level abnormal [Unknown]
  - Bursitis [Unknown]
  - Product packaging issue [Not Recovered/Not Resolved]
  - Product storage error [Unknown]
  - Pulmonary haemorrhage [Unknown]
  - Limb injury [Unknown]
  - Urinary incontinence [Unknown]
  - Headache [Unknown]
  - Tooth disorder [Unknown]
  - Nerve compression [Unknown]
  - Neck pain [Unknown]
  - Oedema peripheral [Unknown]
  - Palpitations [Unknown]
  - Blood uric acid increased [Unknown]
  - Gout [Unknown]
  - Lymphoedema [Not Recovered/Not Resolved]
  - Aortic dilatation [Unknown]
  - Food poisoning [Unknown]
  - Nausea [Not Recovered/Not Resolved]
  - Insomnia [Unknown]

NARRATIVE: CASE EVENT DATE: 20150101
